FAERS Safety Report 7027929-2 (Version None)
Quarter: 2010Q4

REPORT INFORMATION
  Report Type: 
  Country: None (occurrence: None)
  Receive Date: 20101001
  Receipt Date: 20101001
  Transmission Date: 20110411
  Serious: No
  Sender: FDA-Public Use
  Company Number: None

PATIENT
  Age: 87 Year
  Sex: Male
  Weight: 74 kg

DRUGS (2)
  1. GALANTAMINE HYDROBROMIDE [Suspect]
     Indication: ATRIAL FIBRILLATION
     Dosage: 8 MG EVERY DAY PO
     Route: 048
     Dates: start: 20100909, end: 20100910
  2. GALANTAMINE HYDROBROMIDE [Suspect]
     Indication: DEMENTIA ALZHEIMER'S TYPE
     Dosage: 8 MG EVERY DAY PO
     Route: 048
     Dates: start: 20100909, end: 20100910

REACTIONS (2)
  - NAUSEA [None]
  - VOMITING [None]
